FAERS Safety Report 17344781 (Version 2)
Quarter: 2021Q1

REPORT INFORMATION
  Report Type: Spontaneous
  Country: US (occurrence: US)
  Receive Date: 20200129
  Receipt Date: 20210203
  Transmission Date: 20210419
  Serious: No
  Sender: FDA-Public Use
  Company Number: US-ALLERGAN-1944435US

PATIENT
  Age: 50 Year
  Sex: Female

DRUGS (10)
  1. BOTOX COSMETIC [Suspect]
     Active Substance: ONABOTULINUMTOXINA
     Indication: SKIN WRINKLING
     Dosage: 7 UNITS, SINGLE
     Route: 065
     Dates: start: 20191014, end: 20191014
  2. BOTOX COSMETIC [Suspect]
     Active Substance: ONABOTULINUMTOXINA
     Dosage: 12 UNITS, SINGLE
     Route: 065
     Dates: start: 20191011, end: 20191011
  3. JUVEDERM VOLBELLA [Suspect]
     Active Substance: HYALURONIC ACID
     Dosage: 0.3 ML, SINGLE
     Route: 065
     Dates: start: 20191021, end: 20191021
  4. HYLENEX RECOMBINANT [Suspect]
     Active Substance: HYALURONIDASE (HUMAN RECOMBINANT)
     Indication: PRODUCT USED FOR UNKNOWN INDICATION
     Dosage: UNK, UNKNOWN
     Route: 065
  5. BOTOX COSMETIC [Suspect]
     Active Substance: ONABOTULINUMTOXINA
     Indication: SKIN WRINKLING
     Dosage: 12 UNITS, SINGLE
     Route: 065
     Dates: start: 20191011, end: 20191011
  6. JUVEDERM VOLBELLA [Suspect]
     Active Substance: HYALURONIC ACID
     Indication: LIP COSMETIC PROCEDURE
     Dosage: UNK, SINGLE
     Dates: start: 20191028, end: 20191028
  7. BOTOX COSMETIC [Suspect]
     Active Substance: ONABOTULINUMTOXINA
     Indication: SKIN WRINKLING
     Dosage: 8 UNITS, SINGLE
     Route: 065
     Dates: start: 20191014, end: 20191014
  8. JUVEDERM VOLBELLA [Suspect]
     Active Substance: HYALURONIC ACID
     Dosage: UNK
     Dates: start: 20190918, end: 20190918
  9. JUVEDERM VOLBELLA [Suspect]
     Active Substance: HYALURONIC ACID
     Indication: SKIN WRINKLING
     Dosage: 0.2 ML, SINGLE
     Route: 065
     Dates: start: 20191021, end: 20191021
  10. BOTOX COSMETIC [Suspect]
     Active Substance: ONABOTULINUMTOXINA
     Indication: SKIN WRINKLING
     Dosage: 8 UNITS, SINGLE
     Route: 065
     Dates: start: 20191014, end: 20191014

REACTIONS (5)
  - Burning sensation [Recovered/Resolved]
  - Pruritus [Recovered/Resolved]
  - Pain [Recovered/Resolved]
  - Off label use [Unknown]
  - Swelling [Recovered/Resolved]

NARRATIVE: CASE EVENT DATE: 20191025
